FAERS Safety Report 4270878-3 (Version None)
Quarter: 2004Q1

REPORT INFORMATION
  Report Type: 
  Country: None (occurrence: None)
  Receive Date: 20040114
  Receipt Date: 20040109
  Transmission Date: 20041129
  Serious: Yes (Hospitalization, Other)
  Sender: FDA-Public Use
  Company Number: PHBS2004US00683

PATIENT
  Age: 46 Year
  Sex: Female

DRUGS (9)
  1. CLOZAPINE [Suspect]
     Indication: SCHIZOPHRENIA
     Dosage: 700 MG/D
     Route: 048
     Dates: start: 19910101
  2. PERPHENAZINE [Concomitant]
  3. CITALOPRAM [Concomitant]
  4. LORAZEPAM [Concomitant]
  5. THYROXINE [Concomitant]
  6. CONTRACEPTIVES UNS [Concomitant]
  7. DOXORUBICIN [Suspect]
  8. CYCLOPHOSPHAMIDE [Concomitant]
  9. RADIOTHERAPY [Concomitant]

REACTIONS (2)
  - NEUTROPENIA [None]
  - WHITE BLOOD CELL COUNT DECREASED [None]
